FAERS Safety Report 13350837 (Version 4)
Quarter: 2017Q2

REPORT INFORMATION
  Report Type: Other
  Country: FR (occurrence: FR)
  Receive Date: 20170320
  Receipt Date: 20170421
  Transmission Date: 20170830
  Serious: Yes (Death, Hospitalization)
  Sender: FDA-Public Use
  Company Number: FR-ASTELLAS-2017US010781

PATIENT
  Age: 80 Year
  Sex: Male

DRUGS (5)
  1. XTANDI [Suspect]
     Active Substance: ENZALUTAMIDE
     Indication: PROSTATE CANCER METASTATIC
     Route: 048
     Dates: start: 20150423
  2. XTANDI [Suspect]
     Active Substance: ENZALUTAMIDE
     Indication: BONE CANCER
     Route: 048
     Dates: end: 20170131
  3. ESTRACYT                           /00327003/ [Suspect]
     Active Substance: ESTRAMUSTINE PHOSPHATE
     Indication: PRODUCT USED FOR UNKNOWN INDICATION
     Dosage: UNK UNK, UNKNOWN FREQ.
     Route: 065
     Dates: start: 201503
  4. DECAPEPTYL                         /00486501/ [Concomitant]
     Active Substance: GONADORELIN
     Indication: PRODUCT USED FOR UNKNOWN INDICATION
     Dosage: UNK UNK, UNKNOWN FREQ.
     Route: 065
  5. ELIGARD [Suspect]
     Active Substance: LEUPROLIDE ACETATE
     Indication: PRODUCT USED FOR UNKNOWN INDICATION
     Dosage: 1 INJECTION EVERY 6 MONTHS
     Route: 065
     Dates: start: 201501

REACTIONS (9)
  - Hallucination [Fatal]
  - Confusional state [Fatal]
  - Encephalopathy [Fatal]
  - Amnesia [Unknown]
  - Underdose [Unknown]
  - Prostatic specific antigen increased [Unknown]
  - Phlebitis [Unknown]
  - Vascular dementia [Fatal]
  - Restless legs syndrome [Fatal]

NARRATIVE: CASE EVENT DATE: 201503
